FAERS Safety Report 11458615 (Version 1)
Quarter: 2015Q3

REPORT INFORMATION
  Report Type: Spontaneous
  Country: US (occurrence: None)
  Receive Date: 20150903
  Receipt Date: 20150903
  Transmission Date: 20151125
  Serious: No
  Sender: FDA-Public Use
  Company Number: None

PATIENT
  Age: 54 Year
  Sex: Female
  Weight: 56.7 kg

DRUGS (10)
  1. CIPROFLOXACIN. [Suspect]
     Active Substance: CIPROFLOXACIN
     Indication: URINARY TRACT INFECTION
     Dosage: 1 PILL
     Dates: start: 20150828, end: 20150901
  2. NATURE-THROID [Concomitant]
     Active Substance: THYROID, PORCINE
  3. GARLIC. [Concomitant]
     Active Substance: GARLIC
  4. TURMERIC [Concomitant]
     Active Substance: TURMERIC
  5. CALCIUM [Concomitant]
     Active Substance: CALCIUM
  6. MILK THISTLE [Concomitant]
     Active Substance: MILK THISTLE
  7. VITAMIN C [Concomitant]
     Active Substance: ASCORBIC ACID
  8. VITAMINS [Concomitant]
     Active Substance: VITAMINS
  9. PSYLLIUM HUSK [Concomitant]
     Active Substance: PSYLLIUM HUSK
  10. CHLOROPHYLL [Concomitant]

REACTIONS (4)
  - Nausea [None]
  - Diarrhoea [None]
  - Tendon pain [None]
  - Myalgia [None]

NARRATIVE: CASE EVENT DATE: 20150831
